FAERS Safety Report 19040869 (Version 4)
Quarter: 2021Q2

REPORT INFORMATION
  Report Type: Report from Study
  Country: US (occurrence: US)
  Receive Date: 20210323
  Receipt Date: 20210422
  Transmission Date: 20210717
  Serious: No
  Sender: FDA-Public Use
  Company Number: NVSC2021US060001

PATIENT
  Age: 66 Year
  Sex: Male

DRUGS (1)
  1. ENTRESTO [Suspect]
     Active Substance: SACUBITRIL\VALSARTAN
     Indication: CARDIAC FAILURE
     Dosage: 100 MG, BID (49/51 MG)
     Route: 048
     Dates: start: 20210224

REACTIONS (9)
  - Hypotension [Unknown]
  - Tongue dry [Unknown]
  - Tooth fracture [Unknown]
  - Blood potassium increased [Unknown]
  - Wrong technique in product usage process [Unknown]
  - Rash [Unknown]
  - Urticaria [Unknown]
  - Dry mouth [Unknown]
  - Fatigue [Unknown]

NARRATIVE: CASE EVENT DATE: 20210224
